FAERS Safety Report 9214354 (Version 2)
Quarter: 2013Q2

REPORT INFORMATION
  Report Type: Report from Study
  Country: FR (occurrence: FR)
  Receive Date: 20130405
  Receipt Date: 20130416
  Transmission Date: 20140414
  Serious: Yes (Hospitalization)
  Sender: FDA-Public Use
  Company Number: FR-ROCHE-1037993

PATIENT
  Age: 68 Year
  Sex: Female
  Weight: 57 kg

DRUGS (7)
  1. TEMOZOLOMIDE [Suspect]
     Indication: GLIOBLASTOMA
     Dosage: LAST DOSE PRIOR TO SAE: 17/NOV/2011.
     Route: 048
     Dates: start: 20101206
  2. IMOVANE [Concomitant]
     Route: 065
     Dates: start: 201010
  3. PANTOPRAZOL [Concomitant]
     Route: 065
     Dates: start: 20110913
  4. INEXIUM [Concomitant]
     Route: 065
     Dates: start: 201010
  5. LEDERFOLINE [Concomitant]
     Route: 065
     Dates: start: 20110120
  6. BACTRIM [Concomitant]
     Route: 065
     Dates: start: 20110120
  7. BEVACIZUMAB [Suspect]
     Indication: GLIOBLASTOMA
     Dosage: DATE OF LAST DOSE PRIOR TO SAE: 06/JAN/2012
     Route: 042
     Dates: start: 20101206, end: 20120203

REACTIONS (1)
  - Optic neuropathy [Not Recovered/Not Resolved]
